FAERS Safety Report 23347541 (Version 1)
Quarter: 2023Q4

REPORT INFORMATION
  Report Type: Spontaneous
  Country: JP (occurrence: None)
  Receive Date: 20231228
  Receipt Date: 20231228
  Transmission Date: 20240110
  Serious: Yes (Other)
  Sender: FDA-Public Use
  Company Number: 2023A291593

PATIENT

DRUGS (1)
  1. LOKELMA [Suspect]
     Active Substance: SODIUM ZIRCONIUM CYCLOSILICATE
     Dosage: DOSE UNKNOWN UNKNOWN
     Route: 048

REACTIONS (2)
  - Gastrointestinal perforation [Unknown]
  - Gastrointestinal injury [Unknown]
